FAERS Safety Report 16796066 (Version 2)
Quarter: 2019Q4

REPORT INFORMATION
  Report Type: Spontaneous
  Country: BR (occurrence: BR)
  Receive Date: 20190911
  Receipt Date: 20191004
  Transmission Date: 20200122
  Serious: Yes (Death, Life-Threatening, Other)
  Sender: FDA-Public Use
  Company Number: BR-SA-2019SA245951

PATIENT
  Age: 67 Year
  Sex: Female
  Weight: 44 kg

DRUGS (16)
  1. LIPITOR [Concomitant]
     Active Substance: ATORVASTATIN CALCIUM
     Dosage: UNK, UNK
  2. TAPAZOL [THIAMAZOLE] [Concomitant]
     Dosage: 5 MG, QD
     Route: 048
  3. MICOSTATIN [Concomitant]
     Dosage: 1 DOSAGE AFTER MEAL
  4. NOVALGINA [Concomitant]
     Active Substance: METAMIZOLE SODIUM
     Dosage: 1 DF, Q6H (1 AMPOULE EVERY 6 HOURS)
     Route: 048
  5. GUTALAX [Concomitant]
     Dosage: 20 DROP, QD
     Route: 048
  6. CLEXANE [Suspect]
     Active Substance: ENOXAPARIN SODIUM
     Indication: THROMBOSIS PROPHYLAXIS
     Dosage: 40 MG, Q12H
     Route: 058
     Dates: start: 20190803
  7. DUOVENT N [Concomitant]
     Active Substance: FENOTEROL HYDROBROMIDE\IPRATROPIUM BROMIDE
     Dosage: 2 SPRAYS , Q6H
     Route: 048
  8. ARADOIS [Concomitant]
     Active Substance: LOSARTAN POTASSIUM
     Dosage: 1 DF, QD IN THE MORNING
  9. GLIFAGE [Concomitant]
     Active Substance: METFORMIN HYDROCHLORIDE
     Dosage: 500 MG, QD
     Route: 048
  10. SODIUM PICOSULFATE [Concomitant]
     Active Substance: SODIUM PICOSULFATE
     Dosage: 20 GTT DROPS, QD
  11. OXYCONTIN [Concomitant]
     Active Substance: OXYCODONE HYDROCHLORIDE
     Dosage: UNK, UNK
  12. MERONEM [Concomitant]
     Active Substance: MEROPENEM
     Dosage: UNK, Q8H (1 VIAL EVERY 8 HOURS)
     Route: 042
  13. ZOFRAN [Concomitant]
     Active Substance: ONDANSETRON HYDROCHLORIDE
     Dosage: 8MG AT MEDICAL DISCRETION
     Route: 042
  14. VONAU FLASH [Concomitant]
     Dosage: UNK
  15. SYMBICORT [Concomitant]
     Active Substance: BUDESONIDE\FORMOTEROL FUMARATE DIHYDRATE
     Dosage: 2 SPRAYS EVERY 12 HOURS
     Route: 048
  16. AVAMYS [Concomitant]
     Active Substance: FLUTICASONE FUROATE
     Dosage: 1 SPRAY EVERY 12 HOURS
     Route: 048

REACTIONS (24)
  - Pyrexia [Unknown]
  - Pulmonary hypertension [Unknown]
  - Oedema [Unknown]
  - Cyst [Unknown]
  - Right ventricular dilatation [Unknown]
  - Pyelocaliectasis [Unknown]
  - Tricuspid valve incompetence [Unknown]
  - Pneumonia [Unknown]
  - Mitral valve calcification [Unknown]
  - Mitral valve incompetence [Unknown]
  - Death [Fatal]
  - Emphysema [Unknown]
  - Cardiac failure [Unknown]
  - Systolic dysfunction [Unknown]
  - Klebsiella infection [Fatal]
  - Spinal disorder [Unknown]
  - Lymphadenopathy mediastinal [Unknown]
  - Ventricular septal defect [Unknown]
  - Aortic valve thickening [Unknown]
  - Pulmonary embolism [Not Recovered/Not Resolved]
  - Pulmonary mass [Unknown]
  - Pleural effusion [Unknown]
  - Tracheostomy [Unknown]
  - Therapy non-responder [Unknown]

NARRATIVE: CASE EVENT DATE: 20190723
